FAERS Safety Report 9530542 (Version 1)
Quarter: 2013Q3

REPORT INFORMATION
  Report Type: Spontaneous
  Country: US (occurrence: US)
  Receive Date: 20130918
  Receipt Date: 20130918
  Transmission Date: 20140515
  Serious: No
  Sender: FDA-Public Use
  Company Number: US-BIOGENIDEC-2013BI086358

PATIENT
  Age: 40 Year
  Sex: Female

DRUGS (2)
  1. TYSABRI [Suspect]
     Indication: MULTIPLE SCLEROSIS
     Route: 042
     Dates: start: 20130626
  2. SUBOXONE [Concomitant]
     Indication: PAIN MANAGEMENT
     Route: 048
     Dates: start: 2012

REACTIONS (5)
  - White blood cell count increased [Not Recovered/Not Resolved]
  - Urine analysis [Not Recovered/Not Resolved]
  - Rash pruritic [Recovered/Resolved]
  - Bronchitis [Recovered/Resolved]
  - Pyrexia [Recovered/Resolved]
